FAERS Safety Report 16903816 (Version 1)
Quarter: 2019Q4

REPORT INFORMATION
  Report Type: Spontaneous
  Country: US (occurrence: US)
  Receive Date: 20191009
  Receipt Date: 20191009
  Transmission Date: 20200122
  Serious: No
  Sender: FDA-Public Use
  Company Number: None

PATIENT
  Age: 47 Year
  Sex: Female
  Weight: 93.15 kg

DRUGS (3)
  1. ZOLPIDEM [Concomitant]
     Active Substance: ZOLPIDEM TARTRATE
  2. LORAZEPAM. [Concomitant]
     Active Substance: LORAZEPAM
  3. LOSARTAN POTASSIUM TABLETS 100MG [Suspect]
     Active Substance: LOSARTAN POTASSIUM
     Indication: HYPERTENSION
     Dosage: ?          QUANTITY:90 TABLET(S);?
     Route: 048
     Dates: start: 20191003, end: 20191009

REACTIONS (4)
  - Tremor [None]
  - Joint stiffness [None]
  - Muscle tightness [None]
  - Nausea [None]

NARRATIVE: CASE EVENT DATE: 20191004
